FAERS Safety Report 5556792-1 (Version None)
Quarter: 2007Q4

REPORT INFORMATION
  Report Type: 
  Country: None (occurrence: None)
  Receive Date: 20071130
  Receipt Date: 20070801
  Transmission Date: 20080405
  Serious: No
  Sender: FDA-Public Use
  Company Number: 2006PV027377

PATIENT
  Age: 64 Year
  Sex: Female
  Weight: 74.8 kg

DRUGS (5)
  1. EXENATIDE(EXENATIDE) PEN,DISPOSABLE [Suspect]
     Indication: TYPE 2 DIABETES MELLITUS
     Dosage: 5 UG, 2/D, SUBCUTANEOUS, 10 UG, 2/D, SUBCUTANEOUS
     Route: 058
     Dates: start: 20060701, end: 20060801
  2. EXENATIDE(EXENATIDE) PEN,DISPOSABLE [Suspect]
     Indication: TYPE 2 DIABETES MELLITUS
     Dosage: 5 UG, 2/D, SUBCUTANEOUS, 10 UG, 2/D, SUBCUTANEOUS
     Route: 058
     Dates: start: 20060801
  3. EXENATIDE(EXENATIDE) PEN,DISPOSABLE [Suspect]
  4. METFORMIN HCL [Concomitant]
  5. CLARITIN [Concomitant]

REACTIONS (8)
  - DIARRHOEA [None]
  - ERUCTATION [None]
  - FLATULENCE [None]
  - NAUSEA [None]
  - ORAL INTAKE REDUCED [None]
  - TOOTH FRACTURE [None]
  - VOMITING [None]
  - WEIGHT DECREASED [None]
